FAERS Safety Report 8327923-5 (Version None)
Quarter: 2012Q2

REPORT INFORMATION
  Report Type: 
  Country: None (occurrence: None)
  Receive Date: 20120502
  Receipt Date: 20120425
  Transmission Date: 20120825
  Serious: Yes (Hospitalization)
  Sender: FDA-Public Use
  Company Number: US-CELGENEUS-163-21880-12020835

PATIENT
  Sex: Male
  Weight: 74.91 kg

DRUGS (12)
  1. AMIODARONE HCL [Concomitant]
     Route: 065
  2. ASPIRIN [Concomitant]
     Route: 065
  3. PREDNISONE [Concomitant]
     Route: 065
  4. RENVELA [Concomitant]
     Route: 065
  5. REVLIMID [Suspect]
     Indication: MULTIPLE MYELOMA
     Route: 048
     Dates: start: 20100422
  6. RENAL [Concomitant]
     Route: 048
  7. CARTIA XT [Concomitant]
     Route: 065
  8. HYDRALAZINE HCL [Concomitant]
     Route: 065
  9. LISINOPRIL [Concomitant]
     Route: 065
  10. WARFARIN SODIUM [Concomitant]
     Route: 065
  11. NYSTATIN [Concomitant]
     Route: 065
  12. NIFEDIPINE [Concomitant]
     Route: 065

REACTIONS (3)
  - PNEUMONIA [None]
  - ATRIAL FIBRILLATION [None]
  - HYPERKALAEMIA [None]
